FAERS Safety Report 12450190 (Version 1)
Quarter: 2016Q2

REPORT INFORMATION
  Report Type: Spontaneous
  Country: US (occurrence: None)
  Receive Date: 20160608
  Receipt Date: 20160608
  Transmission Date: 20160815
  Serious: Yes (Disabling, Other)
  Sender: FDA-Public Use
  Company Number: None

PATIENT
  Age: 28 Year
  Sex: Female
  Weight: 61.69 kg

DRUGS (2)
  1. RHOGAM [Suspect]
     Active Substance: HUMAN RHO(D) IMMUNE GLOBULIN
     Indication: RHESUS ANTIGEN NEGATIVE
     Dates: start: 200411
  2. IRON KOSHER VITAMINS [Concomitant]

REACTIONS (10)
  - Gastrointestinal disorder [None]
  - Restlessness [None]
  - Maternal drugs affecting foetus [None]
  - Tic [None]
  - Dementia [None]
  - Disturbance in attention [None]
  - Muscle spasms [None]
  - Eye movement disorder [None]
  - Abnormal behaviour [None]
  - Headache [None]

NARRATIVE: CASE EVENT DATE: 20050510
